FAERS Safety Report 9752799 (Version 3)
Quarter: 2014Q2

REPORT INFORMATION
  Report Type: Spontaneous
  Country: US (occurrence: US)
  Receive Date: 20131213
  Receipt Date: 20140610
  Transmission Date: 20141212
  Serious: Yes (Life-Threatening, Hospitalization, Disabling, Other)
  Sender: FDA-Public Use
  Company Number: US-MERCK-1312USA006122

PATIENT
  Sex: Female
  Weight: 97.51 kg

DRUGS (3)
  1. JANUVIA [Suspect]
     Indication: TYPE 2 DIABETES MELLITUS
     Dosage: 100 MG, QD
     Route: 048
     Dates: start: 20100830
  2. JANUVIA [Suspect]
     Dosage: 25 MG, UNK
     Route: 048
  3. ONGLYZA [Suspect]
     Indication: TYPE 2 DIABETES MELLITUS
     Dosage: 2.5 MG, QD
     Route: 048
     Dates: start: 20110422, end: 20111211

REACTIONS (22)
  - Adenocarcinoma pancreas [Unknown]
  - Pancreaticoduodenectomy [Unknown]
  - Intussusception [Unknown]
  - Intestinal adhesion lysis [Unknown]
  - Abdominal pain [Not Recovered/Not Resolved]
  - Insulin-requiring type 2 diabetes mellitus [Unknown]
  - Hypertension [Unknown]
  - Depression [Unknown]
  - Anxiety [Unknown]
  - Radiotherapy [Unknown]
  - Vision blurred [Unknown]
  - Halo vision [Unknown]
  - Pyuria [Unknown]
  - Micturition urgency [Unknown]
  - Nocturia [Unknown]
  - Menorrhagia [Unknown]
  - Adrenal adenoma [Unknown]
  - Lymphadenopathy [Unknown]
  - Malnutrition [Unknown]
  - Skin disorder [Unknown]
  - Gastrointestinal disorder [Unknown]
  - Constipation [Unknown]
